FAERS Safety Report 17183635 (Version 9)
Quarter: 2023Q1

REPORT INFORMATION
  Report Type: Spontaneous
  Country: US (occurrence: US)
  Receive Date: 20191220
  Receipt Date: 20230224
  Transmission Date: 20230418
  Serious: No
  Sender: FDA-Public Use
  Company Number: None

PATIENT
  Sex: Male

DRUGS (3)
  1. TURALIO [Suspect]
     Active Substance: PEXIDARTINIB HYDROCHLORIDE
     Indication: Synovitis
     Dosage: 200 MG, BID
     Route: 048
     Dates: start: 20191129
  2. TURALIO [Suspect]
     Active Substance: PEXIDARTINIB HYDROCHLORIDE
     Indication: Giant cell tumour of tendon sheath
     Dosage: 200 MG, BID (2 CAPSULES OF 200 MG)
     Route: 048
     Dates: start: 201909
  3. TURALIO [Suspect]
     Active Substance: PEXIDARTINIB HYDROCHLORIDE
     Dosage: 200 MG, BID
     Route: 048
     Dates: start: 20220510

REACTIONS (13)
  - Swelling [Recovering/Resolving]
  - Hair colour changes [Not Recovered/Not Resolved]
  - Fatigue [Not Recovered/Not Resolved]
  - Swelling face [Not Recovered/Not Resolved]
  - Cognitive disorder [Not Recovered/Not Resolved]
  - Skin discolouration [Unknown]
  - Memory impairment [Unknown]
  - Hair colour changes [Unknown]
  - Pain [Recovering/Resolving]
  - Hypokinesia [Recovering/Resolving]
  - Product dose omission issue [Unknown]
  - Product availability issue [Unknown]
  - Therapy cessation [Unknown]

NARRATIVE: CASE EVENT DATE: 20190101
